FAERS Safety Report 9776911 (Version 1)
Quarter: 2013Q4

REPORT INFORMATION
  Report Type: Report from Study
  Country: US (occurrence: US)
  Receive Date: 20131221
  Receipt Date: 20131221
  Transmission Date: 20140711
  Serious: Yes (Other)
  Sender: FDA-Public Use
  Company Number: US-AMGEN-USANI2013088413

PATIENT
  Age: 59 Year
  Sex: Female
  Weight: 76.4 kg

DRUGS (2)
  1. XGEVA [Suspect]
     Indication: METASTATIC NEOPLASM
     Dosage: UNK
     Route: 065
     Dates: start: 201305
  2. DENOSUMAB [Suspect]
     Indication: PRODUCT USED FOR UNKNOWN INDICATION
     Dosage: UNK
     Route: 065

REACTIONS (1)
  - Osteonecrosis of jaw [Not Recovered/Not Resolved]
